FAERS Safety Report 6440019-2 (Version None)
Quarter: 2009Q4

REPORT INFORMATION
  Report Type: 
  Country: None (occurrence: None)
  Receive Date: 20091112
  Receipt Date: 20091112
  Transmission Date: 20100525
  Serious: Yes (Life-Threatening)
  Sender: FDA-Public Use
  Company Number: None

PATIENT
  Age: 65 Year
  Sex: Male

DRUGS (1)
  1. LEXISCAN [Suspect]
     Indication: DIAGNOSTIC PROCEDURE
     Dates: start: 20081222, end: 20081222

REACTIONS (3)
  - CARDIAC ARREST [None]
  - CONVULSION [None]
  - PALPITATIONS [None]
